FAERS Safety Report 21411922 (Version 1)
Quarter: 2022Q4

REPORT INFORMATION
  Report Type: Spontaneous
  Country: US (occurrence: US)
  Receive Date: 20221005
  Receipt Date: 20221005
  Transmission Date: 20230113
  Serious: No
  Sender: FDA-Public Use
  Company Number: US-Millicent Holdings Ltd.-MILL20220321

PATIENT
  Sex: Female

DRUGS (2)
  1. INTRAROSA [Suspect]
     Active Substance: PRASTERONE
     Indication: Vulvovaginal dryness
     Dosage: UNKNOWN
     Route: 067
  2. INTRAROSA [Suspect]
     Active Substance: PRASTERONE
     Indication: Vulvovaginal burning sensation

REACTIONS (1)
  - Off label use [Unknown]
